FAERS Safety Report 14537528 (Version 1)
Quarter: 2018Q1

REPORT INFORMATION
  Report Type: Spontaneous
  Country: US (occurrence: US)
  Receive Date: 20180215
  Receipt Date: 20180215
  Transmission Date: 20180509
  Serious: No
  Sender: FDA-Public Use
  Company Number: US-IMPAX LABORATORIES, INC-2017-IPXL-00678

PATIENT
  Sex: Male
  Weight: 84 kg

DRUGS (8)
  1. PHENOBARBITON [Concomitant]
     Indication: SEIZURE
     Dosage: 64 MG, ONCE A DAY
     Route: 065
  2. PYRIDOSTIGMINE BROMIDE. [Suspect]
     Active Substance: PYRIDOSTIGMINE BROMIDE
     Indication: MYASTHENIA GRAVIS
     Dosage: SMALLEST DOSE, UNK
     Route: 065
     Dates: start: 201702, end: 201702
  3. PYRIDOSTIGMINE BROMIDE. [Interacting]
     Active Substance: PYRIDOSTIGMINE BROMIDE
     Indication: DIPLOPIA
  4. AMLODIPINE [Concomitant]
     Active Substance: AMLODIPINE BESYLATE
     Indication: BLOOD PRESSURE ABNORMAL
     Dosage: 5 MG, TWICE A DAY
     Route: 065
  5. MYRBETRIQ [Interacting]
     Active Substance: MIRABEGRON
     Indication: HYPERTONIC BLADDER
     Dosage: 25 MG, TABLET, ONCE DAILY
     Route: 048
     Dates: start: 201702, end: 201702
  6. OMEPRAZOLE. [Concomitant]
     Active Substance: OMEPRAZOLE
     Indication: DYSPEPSIA
     Dosage: 20 MG, ONCE A DAY
     Route: 065
  7. METOPROLOL. [Concomitant]
     Active Substance: METOPROLOL
     Indication: BLOOD PRESSURE ABNORMAL
     Dosage: 25 MG, ONCE A DAY
     Route: 065
  8. BENADRYL [Concomitant]
     Active Substance: DIPHENHYDRAMINE HYDROCHLORIDE
     Indication: SLEEP DISORDER
     Dosage: 6 MG, ONCE A DAY
     Route: 065

REACTIONS (3)
  - Drug interaction [Recovered/Resolved]
  - Diplopia [Recovered/Resolved]
  - Condition aggravated [Recovered/Resolved]

NARRATIVE: CASE EVENT DATE: 2017
